FAERS Safety Report 9196185 (Version 3)
Quarter: 2013Q2

REPORT INFORMATION
  Report Type: Spontaneous
  Country: DE (occurrence: DE)
  Receive Date: 20130328
  Receipt Date: 20130403
  Transmission Date: 20140414
  Serious: Yes (Death)
  Sender: FDA-Public Use
  Company Number: DE-SANOFI-AVENTIS-2013SA031951

PATIENT
  Age: 77 Year
  Sex: Male
  Weight: 76 kg

DRUGS (14)
  1. CLEXANE [Suspect]
     Indication: THROMBOSIS PROPHYLAXIS
     Dosage: 40 MG / DAY (EVENING)
     Route: 058
     Dates: start: 20130106, end: 20130109
  2. CLEXANE [Suspect]
     Indication: THROMBOSIS PROPHYLAXIS
     Dosage: 40 MG / DAY (EVENING)
     Route: 058
     Dates: start: 20130106, end: 20130109
  3. CLEXANE [Suspect]
     Indication: THROMBOSIS PROPHYLAXIS
     Dosage: 40 MG / DAY (EVENING)
     Route: 058
     Dates: start: 20130106, end: 20130109
  4. CLEXANE [Suspect]
     Indication: THROMBOSIS PROPHYLAXIS
     Dosage: 40 MG / DAY (EVENING)
     Route: 058
     Dates: start: 20130106, end: 20130109
  5. CLEXANE [Suspect]
     Indication: THROMBOSIS PROPHYLAXIS
     Dosage: 40 MG / DAY (EVENING)
     Route: 058
     Dates: start: 20130106, end: 20130109
  6. CLEXANE [Suspect]
     Indication: THROMBOSIS PROPHYLAXIS
     Dosage: 40 MG / DAY (EVENING)
     Route: 058
     Dates: start: 20130106, end: 20130109
  7. CLEXANE [Suspect]
     Indication: THROMBOSIS PROPHYLAXIS
     Dosage: 40 MG / DAY (EVENING)
     Route: 058
     Dates: start: 20130106, end: 20130109
  8. TAMSULOSIN [Concomitant]
     Indication: PRODUCT USED FOR UNKNOWN INDICATION
     Route: 065
     Dates: start: 20130106, end: 20130109
  9. TORASEMIDE [Concomitant]
     Indication: PRODUCT USED FOR UNKNOWN INDICATION
     Route: 065
     Dates: start: 20130106, end: 20130109
  10. ALLOPURINOL [Concomitant]
     Indication: PRODUCT USED FOR UNKNOWN INDICATION
     Route: 065
     Dates: start: 20130106, end: 20130109
  11. HYDROCHLOROTHIAZIDE [Concomitant]
     Indication: PRODUCT USED FOR UNKNOWN INDICATION
     Route: 065
     Dates: start: 20130106, end: 20130109
  12. AMLODIPINE [Concomitant]
     Indication: PRODUCT USED FOR UNKNOWN INDICATION
     Route: 065
     Dates: start: 20130106, end: 20130109
  13. CEFUROXIME [Concomitant]
     Indication: PRODUCT USED FOR UNKNOWN INDICATION
     Route: 065
     Dates: start: 20130107, end: 20130107
  14. CEFUROXIME [Concomitant]
     Indication: PRODUCT USED FOR UNKNOWN INDICATION
     Route: 065
     Dates: start: 20130109, end: 20130109

REACTIONS (7)
  - Pulmonary embolism [Fatal]
  - Drug ineffective [Fatal]
  - Cardiovascular disorder [None]
  - Haemoglobin decreased [None]
  - Intra-abdominal haemorrhage [None]
  - Muscle spasms [None]
  - Brain injury [None]
